FAERS Safety Report 15625547 (Version 2)
Quarter: 2019Q2

REPORT INFORMATION
  Report Type: Spontaneous
  Country: GB (occurrence: GB)
  Receive Date: 20181116
  Receipt Date: 20190405
  Transmission Date: 20190711
  Serious: Yes (Death, Congenital Anomaly, Other)
  Sender: FDA-Public Use
  Company Number: PHHY2018GB152668

PATIENT
  Sex: Female

DRUGS (8)
  1. EPOGEN [Suspect]
     Active Substance: ERYTHROPOIETIN
     Indication: FOETAL EXPOSURE DURING PREGNANCY
     Dosage: UNK
     Route: 064
  2. NORVASC [Suspect]
     Active Substance: AMLODIPINE BESYLATE
     Indication: FOETAL EXPOSURE DURING PREGNANCY
     Dosage: UNK
     Route: 064
  3. TACROLIMUS. [Suspect]
     Active Substance: TACROLIMUS
     Indication: FOETAL EXPOSURE DURING PREGNANCY
     Dosage: MATERNAL DOSE: 3 MG IN THE MORNING AND 2MG AT NIGHT
     Route: 064
  4. ACICLOVIR [Suspect]
     Active Substance: ACYCLOVIR
     Indication: FOETAL EXPOSURE DURING PREGNANCY
     Dosage: UNK
     Route: 064
  5. MYCOPHENOLATE MOFETIL. [Suspect]
     Active Substance: MYCOPHENOLATE MOFETIL
     Indication: FOETAL EXPOSURE DURING PREGNANCY
     Dosage: MATERNAL DOSE: 250 MG, 2X/DAY
     Route: 064
  6. METOPROLOL. [Suspect]
     Active Substance: METOPROLOL
     Indication: FOETAL EXPOSURE DURING PREGNANCY
     Dosage: UNK
     Route: 064
  7. LASIX [Suspect]
     Active Substance: FUROSEMIDE
     Indication: FOETAL EXPOSURE DURING PREGNANCY
     Dosage: UNK
     Route: 064
  8. PREDNISONE. [Suspect]
     Active Substance: PREDNISONE
     Indication: FOETAL EXPOSURE DURING PREGNANCY
     Dosage: MATERNAL DOSE: 5 MG, QD
     Route: 064

REACTIONS (17)
  - Craniofacial deformity [Fatal]
  - Tracheo-oesophageal fistula [Fatal]
  - Atrial septal defect [Fatal]
  - Fryns syndrome [Unknown]
  - Dysmorphism [Fatal]
  - Cleft palate [Fatal]
  - Heart disease congenital [Fatal]
  - Coarctation of the aorta [Unknown]
  - Congenital diaphragmatic hernia [Fatal]
  - Congenital nail disorder [Fatal]
  - Abdominal hernia [Unknown]
  - Congenital anomaly [Unknown]
  - Oesophageal atresia [Fatal]
  - Microtia [Fatal]
  - Foetal exposure during pregnancy [Fatal]
  - Pulmonary hypoplasia [Fatal]
  - Cyanosis [Unknown]
